FAERS Safety Report 9805554 (Version 1)
Quarter: 2014Q1

REPORT INFORMATION
  Report Type: Spontaneous
  Country: US (occurrence: US)
  Receive Date: 20140109
  Receipt Date: 20140109
  Transmission Date: 20141002
  Serious: Yes (Life-Threatening, Hospitalization, Other)
  Sender: FDA-Public Use
  Company Number: US-ELI_LILLY_AND_COMPANY-US201401000917

PATIENT
  Age: 52 Year
  Sex: Male
  Weight: 114.29 kg

DRUGS (5)
  1. CYMBALTA [Suspect]
     Indication: DIABETIC NEUROPATHY
     Dosage: UNK, UNKNOWN
     Route: 065
     Dates: start: 2010, end: 201305
  2. CYMBALTA [Suspect]
     Indication: BACK PAIN
  3. LYRICA [Suspect]
     Indication: DIABETIC NEUROPATHY
     Dosage: 100 MG, QD
     Route: 065
     Dates: start: 2010
  4. LYRICA [Suspect]
     Indication: BACK PAIN
  5. PRILOSEC [Suspect]
     Indication: NERVE INJURY
     Dosage: 20.6 MG, UNKNOWN
     Route: 065
     Dates: start: 2010

REACTIONS (14)
  - Blood glucose increased [Unknown]
  - Loss of consciousness [Unknown]
  - Haematemesis [Recovering/Resolving]
  - Dizziness [Unknown]
  - Eructation [Unknown]
  - Vomiting [Unknown]
  - Fall [Unknown]
  - Blood glucose abnormal [Unknown]
  - Malaise [Unknown]
  - Pyrexia [Unknown]
  - Nausea [Unknown]
  - Constipation [Recovering/Resolving]
  - Insomnia [Not Recovered/Not Resolved]
  - Pain in extremity [Not Recovered/Not Resolved]
